FAERS Safety Report 18076986 (Version 2)
Quarter: 2020Q4

REPORT INFORMATION
  Report Type: Other
  Country: US (occurrence: US)
  Receive Date: 20200728
  Receipt Date: 20201118
  Transmission Date: 20210113
  Serious: Yes (Hospitalization, Other)
  Sender: FDA-Public Use
  Company Number: US-ROCHE-2648397

PATIENT
  Sex: Female

DRUGS (16)
  1. NEURONTIN [Concomitant]
     Active Substance: GABAPENTIN
     Dosage: 300 MG BY MOUTH 2 (TWO) TIMES DAILY
     Route: 048
  2. CYMBALTA [Concomitant]
     Active Substance: DULOXETINE HYDROCHLORIDE
     Dosage: 60 MG BY MOUTH DAILY WITH LUNCH
     Route: 048
  3. LIPITOR [Concomitant]
     Active Substance: ATORVASTATIN CALCIUM
     Dosage: ONE TABLET BY MOUTH NIGHTLY
     Route: 048
  4. IMDUR [Concomitant]
     Active Substance: ISOSORBIDE MONONITRATE
     Dosage: ONE TABLET BY MOUTH DAILY WITH BREAKFAST
     Route: 048
  5. ACTEMRA [Suspect]
     Active Substance: TOCILIZUMAB
     Indication: GIANT CELL ARTERITIS
     Dosage: INJECT 162MG SUBCUTANEOUSLY EVERY WEEK
     Route: 058
  6. MULTIVITAMINS, OTHER COMBINATIONS [Concomitant]
     Dosage: MULTIVITAMINS-IRON-MINERALS AND FOLIC ACID?3,500-18-0.4 MG MG CHEW?ONE TABLET BY MOUTH DAILY WITH LU
  7. KLOR-CON [Concomitant]
     Active Substance: POTASSIUM CHLORIDE
     Dosage: 20 MEQ BY MOUTH BY MOUTH 2 (TWO) TIMES DAILY
     Route: 048
  8. TYLENOL ER [Concomitant]
     Active Substance: ACETAMINOPHEN
     Indication: PAIN
     Dosage: CONTAINS ACETAMINOPHEN.?1300 MG BY MOUTH EVERY 8 HOURS AS NEEDED FOR PAIN
     Route: 048
  9. TOPROL XL [Concomitant]
     Active Substance: METOPROLOL SUCCINATE
     Dosage: 25 MG 24 HOUR TABLET, ONE TABLET (25 MG TOTAL) BY MOUTH DAILY
     Route: 048
  10. ACTEMRA [Suspect]
     Active Substance: TOCILIZUMAB
  11. CAUMADIN [Suspect]
     Active Substance: WARFARIN SODIUM
     Indication: PRODUCT USED FOR UNKNOWN INDICATION
     Route: 065
  12. VITAMIN C [Concomitant]
     Active Substance: ASCORBIC ACID
     Dosage: 1000 MG BY MOUTH DAILY WITH LUNCH
     Route: 048
  13. LASIX [Concomitant]
     Active Substance: FUROSEMIDE
     Dosage: ONE TABLET BY MOUTH DAILY
     Route: 048
  14. ZESTRIL [Concomitant]
     Active Substance: LISINOPRIL
     Dosage: 30 MG BY MOUTH DAILY WITH LUNCH
     Route: 048
  15. ALBUTEROL. [Concomitant]
     Active Substance: ALBUTEROL
     Indication: WHEEZING
     Dosage: 2.5 MG BY NEBULIZATION EVERY SIX HOURS AS NEEDED FOR WHEEZING
  16. AMBIEN [Concomitant]
     Active Substance: ZOLPIDEM TARTRATE
     Indication: DRUG THERAPY
     Dosage: 5 MG BY MOUTH NIGHTLY AS NEEDED FOR SLEEP
     Route: 048

REACTIONS (8)
  - Chest pain [Unknown]
  - Pneumonia [Unknown]
  - Gastrointestinal haemorrhage [Recovered/Resolved]
  - Hypokalaemia [Unknown]
  - Diverticulum [Unknown]
  - Troponin increased [Unknown]
  - Blood loss anaemia [Unknown]
  - Ischaemia [Unknown]
